FAERS Safety Report 4865161-9 (Version None)
Quarter: 2005Q4

REPORT INFORMATION
  Report Type: 
  Country: None (occurrence: None)
  Receive Date: 20051220
  Receipt Date: 20051129
  Transmission Date: 20060501
  Serious: Yes (Life-Threatening, Hospitalization)
  Sender: FDA-Public Use
  Company Number: USA0511112841

PATIENT
  Age: 45 Year
  Sex: Male

DRUGS (4)
  1. CYMBALTA [Suspect]
     Indication: PAIN
     Dates: start: 20051001, end: 20050101
  2. HUMULIN (INSULIN HUMAN, INSULIN ISOPHANE, HUMAN BIOSYNTHETIC) [Concomitant]
  3. ALEVE [Concomitant]
  4. ALLERGY MEDICATION [Concomitant]

REACTIONS (8)
  - ANGIONEUROTIC OEDEMA [None]
  - DIZZINESS [None]
  - EYE SWELLING [None]
  - HYPOTENSION [None]
  - LACRIMATION INCREASED [None]
  - SYNCOPE [None]
  - TREMOR [None]
  - URTICARIA [None]
